FAERS Safety Report 9914575 (Version 2)
Quarter: 2014Q2

REPORT INFORMATION
  Report Type: Report from Study
  Country: BR (occurrence: BR)
  Receive Date: 20140220
  Receipt Date: 20140424
  Transmission Date: 20141212
  Serious: Yes (Other)
  Sender: FDA-Public Use
  Company Number: PHHY2014BR018895

PATIENT
  Age: 40 Year
  Sex: Male
  Weight: 50 kg

DRUGS (9)
  1. SANDOSTATIN LAR [Suspect]
     Indication: RENAL NEOPLASM
     Dosage: LOWER MILLIGRAM( AS REPORTED), EVERY DAY
     Dates: start: 201308, end: 201312
  2. SANDOSTATIN LAR [Suspect]
     Indication: OFF LABEL USE
     Dosage: GREATER MILLIGRAM (AS REPORTED), ONCE A MONTH
     Dates: start: 201312
  3. ZOMETA [Suspect]
     Indication: BONE DISORDER
     Dosage: ONCE A MONTH
     Dates: start: 201312
  4. GABAPENTINA [Concomitant]
     Indication: BURNING SENSATION
     Dosage: THREE TIMES A DAY
     Dates: start: 201310
  5. DIMORF [Concomitant]
     Indication: PAIN
     Dosage: 4 TO 4 HOURS
     Dates: start: 201310
  6. TYLEX                              /00116401/ [Concomitant]
     Indication: PAIN
     Dosage: 4 TO 4 HOURS
     Dates: start: 201308
  7. ARCOXIA [Concomitant]
     Indication: INFLAMMATION
     Dosage: ONCE A DAY
     Dates: start: 201308, end: 20140211
  8. DECADRON                                /CAN/ [Concomitant]
     Indication: INFLAMMATION
     Dosage: THREE TIMES A DAY
     Dates: start: 20140211
  9. OMEPRAZOLE [Concomitant]
     Indication: PROPHYLAXIS
     Dosage: ONCE A DAY
     Dates: start: 201308

REACTIONS (4)
  - Metastases to bone [Not Recovered/Not Resolved]
  - Decubitus ulcer [Recovering/Resolving]
  - Swelling [Unknown]
  - Incorrect drug administration duration [Unknown]
